FAERS Safety Report 9936806 (Version 1)
Quarter: 2014Q1

REPORT INFORMATION
  Report Type: Spontaneous
  Country: US (occurrence: None)
  Receive Date: 20140109
  Receipt Date: 20140109
  Transmission Date: 20141002
  Serious: Yes (Hospitalization)
  Sender: FDA-Public Use
  Company Number: 366884

PATIENT
  Age: 69 Year
  Sex: Female

DRUGS (3)
  1. LEVEMIR FLEXPEN (INSULIN DETEMIR) SOLUTION FOR INJECTION, .0024MOL/L [Suspect]
     Indication: TYPE 2 DIABETES MELLITUS
     Dosage: 50, SUBCUTANEOUS
     Route: 058
     Dates: start: 20111212
  2. GABAPENTIN (GABAPENTIN) [Concomitant]
  3. METFORMIN (METFORMIN) [Concomitant]

REACTIONS (1)
  - Blood glucose decreased [None]
